APPROVED DRUG PRODUCT: ZOLPIDEM TARTRATE
Active Ingredient: ZOLPIDEM TARTRATE
Strength: 5MG
Dosage Form/Route: TABLET;SUBLINGUAL
Application: A202657 | Product #001
Applicant: PHARMOBEDIENT CONSULTING LLC
Approved: Aug 8, 2016 | RLD: No | RS: No | Type: DISCN